FAERS Safety Report 9959490 (Version 1)
Quarter: 2014Q1

REPORT INFORMATION
  Report Type: Spontaneous
  Country: US (occurrence: None)
  Receive Date: 20140228
  Receipt Date: 20140228
  Transmission Date: 20141002
  Serious: Yes (Hospitalization)
  Sender: FDA-Public Use
  Company Number: None

PATIENT
  Sex: Male

DRUGS (1)
  1. PEGASYS [Suspect]
     Indication: HEPATITIS B
     Dosage: INJECT CONTENTS OF 1 PEN (0.5 ML)
     Route: 058
     Dates: start: 20140131

REACTIONS (2)
  - Dysuria [None]
  - Urethral haemorrhage [None]
